FAERS Safety Report 13290760 (Version 1)
Quarter: 2017Q1

REPORT INFORMATION
  Report Type: Spontaneous
  Country: US (occurrence: US)
  Receive Date: 20170303
  Receipt Date: 20170303
  Transmission Date: 20170428
  Serious: No
  Sender: FDA-Public Use
  Company Number: US-PFIZER INC-2017091080

PATIENT
  Age: 79 Year
  Sex: Male
  Weight: 58.97 kg

DRUGS (1)
  1. GABAPENTIN. [Suspect]
     Active Substance: GABAPENTIN
     Indication: PAIN
     Dosage: UNK

REACTIONS (2)
  - Diarrhoea [Unknown]
  - Product use issue [Unknown]

NARRATIVE: CASE EVENT DATE: 2016
